FAERS Safety Report 11863469 (Version 2)
Quarter: 2016Q4

REPORT INFORMATION
  Report Type: Spontaneous
  Country: US (occurrence: US)
  Receive Date: 20151223
  Receipt Date: 20161116
  Transmission Date: 20170206
  Serious: Yes (Hospitalization, Other)
  Sender: FDA-Public Use
  Company Number: US-DRREDDYS-USA/USA/15/0054810

PATIENT
  Age: 55 Year
  Sex: Female

DRUGS (1)
  1. TACROLIMUS. [Suspect]
     Active Substance: TACROLIMUS
     Indication: IMMUNOSUPPRESSION
     Route: 065

REACTIONS (9)
  - Chills [Unknown]
  - Drug ineffective [Unknown]
  - Pyrexia [Unknown]
  - Anaemia [Unknown]
  - Renal transplant failure [Unknown]
  - Septic shock [Recovered/Resolved]
  - White blood cell count increased [Unknown]
  - Dyspnoea [Unknown]
  - Alcaligenes infection [Unknown]
